FAERS Safety Report 17969599 (Version 1)
Quarter: 2020Q3

REPORT INFORMATION
  Report Type: Spontaneous
  Country: US (occurrence: US)
  Receive Date: 20200701
  Receipt Date: 20200701
  Transmission Date: 20201103
  Serious: Yes (Hospitalization)
  Sender: FDA-Public Use
  Company Number: US-GW PHARMA-202006USGW02318

PATIENT

DRUGS (1)
  1. EPIDIOLEX [Suspect]
     Active Substance: CANNABIDIOL
     Indication: PRODUCT USED FOR UNKNOWN INDICATION
     Dosage: UNK

REACTIONS (10)
  - Temperature intolerance [Unknown]
  - Upper limb fracture [Unknown]
  - Seizure [Unknown]
  - Eye movement disorder [Unknown]
  - Osteomyelitis [Recovered/Resolved]
  - Speech disorder [Unknown]
  - Incorrect route of product administration [Unknown]
  - Pneumonia [Unknown]
  - Abnormal behaviour [Unknown]
  - Urinary tract infection [Unknown]
